FAERS Safety Report 21125237 (Version 1)
Quarter: 2022Q3

REPORT INFORMATION
  Report Type: Spontaneous
  Country: SE (occurrence: SE)
  Receive Date: 20220725
  Receipt Date: 20220725
  Transmission Date: 20221027
  Serious: Yes (Other)
  Sender: FDA-Public Use
  Company Number: None

PATIENT

DRUGS (2)
  1. FLUTICASONE FUROATE [Suspect]
     Active Substance: FLUTICASONE FUROATE
     Indication: Hypersensitivity
     Dosage: 2 DF, QD, (ONE SPRAY IN EACH NOSTRIL, TWICE A DAY)
     Route: 045
  2. OLOPATADINE [Concomitant]
     Active Substance: OLOPATADINE
     Indication: Product used for unknown indication
     Dosage: 1 MG/ML, BID, (ONE DROP IN EACH EYE TWICE A DAY)
     Route: 050

REACTIONS (1)
  - Respiratory depression [Recovered/Resolved]
